FAERS Safety Report 7701616-7 (Version None)
Quarter: 2011Q3

REPORT INFORMATION
  Report Type: 
  Country: None (occurrence: None)
  Receive Date: 20110819
  Receipt Date: 20110819
  Transmission Date: 20111222
  Serious: No
  Sender: FDA-Public Use
  Company Number: None

PATIENT
  Sex: Male
  Weight: 90.7194 kg

DRUGS (2)
  1. NASONEX [Suspect]
     Indication: RHINITIS ALLERGIC
     Dosage: 2 SPRAYS EACH NOSTRIL DAILY INTRANASAL
     Route: 045
     Dates: start: 20050101, end: 20090101
  2. NASAREL [Suspect]
     Indication: RHINITIS ALLERGIC
     Dosage: 2 SPRAYS EACH NOSTRIL DAILY INTRANASAL
     Route: 045
     Dates: start: 20090101, end: 20110101

REACTIONS (1)
  - DRUG INEFFECTIVE [None]
